FAERS Safety Report 7282831-6 (Version None)
Quarter: 2011Q1

REPORT INFORMATION
  Report Type: 
  Country: None (occurrence: None)
  Receive Date: 20110128
  Receipt Date: 20110120
  Transmission Date: 20110831
  Serious: Yes (Death)
  Sender: FDA-Public Use
  Company Number: 1000018343

PATIENT
  Age: 40 Year
  Sex: Male

DRUGS (11)
  1. LORCET-HD [Suspect]
  2. SIMVASTATIN [Suspect]
  3. LEVOTHROID [Suspect]
  4. AMLODIPINE [Suspect]
  5. GLYBURIDE [Suspect]
  6. ENALAPRIL MALEATE [Suspect]
  7. TAMSULOSIN HCL [Suspect]
  8. NISOLDIPINE [Suspect]
  9. HYDRALAZINE HCL [Suspect]
  10. FUROSEMIDE [Suspect]
  11. CLOPIDOGREL [Suspect]

REACTIONS (2)
  - MULTIPLE DRUG OVERDOSE INTENTIONAL [None]
  - COMPLETED SUICIDE [None]
